FAERS Safety Report 6925775-9 (Version None)
Quarter: 2010Q3

REPORT INFORMATION
  Report Type: 
  Country: None (occurrence: None)
  Receive Date: 20100816
  Receipt Date: 20100806
  Transmission Date: 20110219
  Serious: Yes (Hospitalization)
  Sender: FDA-Public Use
  Company Number: B0665709A

PATIENT
  Age: 57 Year
  Sex: Male

DRUGS (7)
  1. ROPINIROLE [Suspect]
     Route: 048
     Dates: start: 20100701
  2. ABILIFY [Suspect]
     Indication: HALLUCINATION
     Route: 048
  3. ABILIFY [Suspect]
     Indication: PARKINSON'S DISEASE
     Route: 048
  4. STALEVO 100 [Concomitant]
     Dosage: 1IUAX PER DAY
     Route: 048
  5. DONEPEZIL HCL [Concomitant]
     Dosage: 5MG PER DAY
     Route: 048
     Dates: start: 20100701
  6. OMEPRAZOLE [Concomitant]
     Dosage: 20MG PER DAY
     Route: 048
     Dates: start: 20100701
  7. CO-CARELDOPA [Concomitant]
     Dosage: 1IUAX PER DAY
     Route: 048
     Dates: start: 20100701

REACTIONS (3)
  - ASTHENIA [None]
  - DYSPHAGIA [None]
  - DYSPNOEA [None]
